FAERS Safety Report 6271763-8 (Version None)
Quarter: 2009Q3

REPORT INFORMATION
  Report Type: 
  Country: None (occurrence: None)
  Receive Date: 20090717
  Receipt Date: 20090706
  Transmission Date: 20100115
  Serious: Yes (Other)
  Sender: FDA-Public Use
  Company Number: DE-BAYER-200920693GPV

PATIENT
  Age: 24 Year
  Sex: Female
  Weight: 57 kg

DRUGS (4)
  1. MIRENA [Suspect]
     Indication: CONTRACEPTION
     Route: 015
     Dates: start: 20080201
  2. MESALAMINE [Concomitant]
     Indication: CROHN'S DISEASE
     Dates: start: 19970101
  3. PENTASA [Concomitant]
     Indication: CROHN'S DISEASE
     Dosage: TOTAL DAILY DOSE: 4 G
     Dates: start: 19980101, end: 20090101
  4. LIALDA [Concomitant]
     Indication: CROHN'S DISEASE
     Dosage: TOTAL DAILY DOSE: 4.8 G
     Dates: start: 20090101

REACTIONS (3)
  - ALANINE AMINOTRANSFERASE INCREASED [None]
  - BLOOD ALKALINE PHOSPHATASE INCREASED [None]
  - CHOLANGITIS SCLEROSING [None]
